FAERS Safety Report 10644561 (Version 2)
Quarter: 2014Q4

REPORT INFORMATION
  Report Type: Spontaneous
  Country: FR (occurrence: FR)
  Receive Date: 20141210
  Receipt Date: 20141218
  Transmission Date: 20150529
  Serious: Yes (Hospitalization)
  Sender: FDA-Public Use
  Company Number: FR-TEVA-526338ISR

PATIENT
  Sex: Female

DRUGS (2)
  1. COPAXONE [Suspect]
     Active Substance: GLATIRAMER ACETATE
     Indication: MULTIPLE SCLEROSIS
     Dosage: 20MG, MANUAL INJECTION
     Dates: start: 20080110, end: 2008
  2. COPAXONE [Suspect]
     Active Substance: GLATIRAMER ACETATE
     Dosage: 20MG, MANUAL INJECTION
     Dates: start: 2008, end: 201406

REACTIONS (2)
  - Lymphadenopathy [Unknown]
  - Pericarditis [Not Recovered/Not Resolved]
